FAERS Safety Report 24428034 (Version 1)
Quarter: 2024Q4

REPORT INFORMATION
  Report Type: Spontaneous
  Country: JP (occurrence: JP)
  Receive Date: 20241011
  Receipt Date: 20241011
  Transmission Date: 20250115
  Serious: Yes (Other)
  Sender: ALEXION PHARMACEUTICALS
  Company Number: JP-ASTRAZENECA-240104799_064320_P_1

PATIENT

DRUGS (3)
  1. ANDEXXA [Suspect]
     Active Substance: ANDEXANET ALFA
     Dosage: 200 MILLIGRAM
  2. ANDEXXA [Suspect]
     Active Substance: ANDEXANET ALFA
     Dosage: DOSE UNKNOWN
  3. ANDEXXA [Suspect]
     Active Substance: ANDEXANET ALFA
     Dosage: SEE NARRATIVE

REACTIONS (1)
  - Thrombosis [Recovered/Resolved]
